FAERS Safety Report 6367926-3 (Version None)
Quarter: 2009Q3

REPORT INFORMATION
  Report Type: 
  Country: None (occurrence: None)
  Receive Date: 20090922
  Receipt Date: 20081212
  Transmission Date: 20100115
  Serious: No
  Sender: FDA-Public Use
  Company Number: A0760342A

PATIENT
  Sex: Female

DRUGS (1)
  1. SEREVENT [Suspect]
     Indication: ASTHMA
     Route: 055
     Dates: start: 19960101

REACTIONS (3)
  - ALOPECIA [None]
  - NAIL DISORDER [None]
  - ONYCHOCLASIS [None]
